FAERS Safety Report 10647309 (Version 1)
Quarter: 2014Q4

REPORT INFORMATION
  Report Type: Spontaneous
  Country: ES (occurrence: ES)
  Receive Date: 20141211
  Receipt Date: 20141211
  Transmission Date: 20150529
  Serious: Yes (Hospitalization)
  Sender: FDA-Public Use
  Company Number: ES-EISAI MEDICAL RESEARCH-EC-2014-002171

PATIENT
  Age: 55 Year
  Sex: Female

DRUGS (4)
  1. NABUMETONA [Concomitant]
     Indication: MIGRAINE
     Dosage: UNKNOWN
     Route: 048
  2. ZONEGRAN [Suspect]
     Active Substance: ZONISAMIDE
     Indication: MIGRAINE
     Route: 048
     Dates: start: 20141016, end: 20141102
  3. ZOMIG FLAS 5 MG COMPRIMIDOS BUCODISPERSABLES , 6 COMPRIMIDOS [Concomitant]
     Indication: MIGRAINE
     Dosage: UNKNOWN
     Route: 048
  4. CAPSAICINA [Concomitant]
     Indication: MIGRAINE
     Dosage: UNKNOWN
     Route: 048

REACTIONS (5)
  - Face oedema [Recovered/Resolved]
  - Erythema multiforme [Recovered/Resolved]
  - Pruritus generalised [Recovered/Resolved]
  - Anaphylactic shock [Recovered/Resolved]
  - Tongue pruritus [Recovered/Resolved]

NARRATIVE: CASE EVENT DATE: 20141016
